FAERS Safety Report 17450437 (Version 1)
Quarter: 2020Q1

REPORT INFORMATION
  Report Type: Spontaneous
  Country: US (occurrence: US)
  Receive Date: 20200210
  Receipt Date: 20200210
  Transmission Date: 20200409
  Serious: No
  Sender: FDA-Public Use
  Company Number: None

PATIENT
  Age: 74 Year
  Sex: Female

DRUGS (4)
  1. LISINOPRIL. [Concomitant]
     Active Substance: LISINOPRIL
  2. AMLODIPINE [Suspect]
     Active Substance: AMLODIPINE BESYLATE
  3. XARELTO [Concomitant]
     Active Substance: RIVAROXABAN
  4. SIROLIMUS 1MG TABLET [Suspect]
     Active Substance: SIROLIMUS
     Indication: SOFT TISSUE SARCOMA
     Route: 048
     Dates: start: 20200208

REACTIONS (2)
  - Bone pain [None]
  - Crying [None]

NARRATIVE: CASE EVENT DATE: 20200210
